FAERS Safety Report 14341329 (Version 1)
Quarter: 2018Q1

REPORT INFORMATION
  Report Type: Spontaneous
  Country: DE (occurrence: DE)
  Receive Date: 20180102
  Receipt Date: 20180102
  Transmission Date: 20180509
  Serious: Yes (Hospitalization)
  Sender: FDA-Public Use
  Company Number: DE-TEVA-2017-DE-838666

PATIENT
  Age: 78 Year
  Sex: Male

DRUGS (22)
  1. DRONABINOL. [Suspect]
     Active Substance: DRONABINOL
     Dosage: DOSAGE RANGING FROM 2.5-15 MG/D; LATER INCREASED
     Route: 065
  2. CLOZAPINE. [Concomitant]
     Active Substance: CLOZAPINE
     Route: 065
  3. ZUCLOPENTHIXOL [Concomitant]
     Active Substance: ZUCLOPENTHIXOL
     Route: 065
  4. BENPERIDOL [Concomitant]
     Active Substance: BENPERIDOL
     Route: 065
  5. FLUPENTIXOL [Concomitant]
     Active Substance: FLUPENTIXOL
     Dosage: DOSE RAISED TO 20 MG/DAY
     Route: 048
  6. CARBAMAZEPINE. [Concomitant]
     Active Substance: CARBAMAZEPINE
     Route: 065
  7. QUETIAPINE. [Suspect]
     Active Substance: QUETIAPINE
     Dosage: RAISED TO 150 MG/D
     Route: 048
  8. FLUPENTIXOL [Concomitant]
     Active Substance: FLUPENTIXOL
     Route: 048
  9. LORAZEPAM. [Suspect]
     Active Substance: LORAZEPAM
     Route: 065
  10. ARIPIPRAZOLE. [Concomitant]
     Active Substance: ARIPIPRAZOLE
     Route: 065
  11. MIRTAZAPINE. [Concomitant]
     Active Substance: MIRTAZAPINE
     Route: 065
  12. AMPICILLIN/SULBACTAM [Suspect]
     Active Substance: AMPICILLIN SODIUM\SULBACTAM SODIUM
     Indication: PNEUMONIA
     Route: 065
     Dates: start: 201601
  13. TRAZODONE [Concomitant]
     Active Substance: TRAZODONE HYDROCHLORIDE
     Route: 065
  14. DIAZEPAM. [Concomitant]
     Active Substance: DIAZEPAM
     Route: 065
  15. QUETIAPINE. [Suspect]
     Active Substance: QUETIAPINE
     Dosage: FINAL DOSE OF 100 MG/D
     Route: 048
  16. RIVASTIGMINE. [Concomitant]
     Active Substance: RIVASTIGMINE
     Indication: DEMENTIA WITH LEWY BODIES
     Route: 065
  17. TIOTROPIUM [Suspect]
     Active Substance: TIOTROPIUM
     Indication: PNEUMONIA
     Route: 065
     Dates: start: 201601
  18. QUETIAPINE. [Suspect]
     Active Substance: QUETIAPINE
     Route: 048
  19. RISPERIDONE. [Concomitant]
     Active Substance: RISPERIDONE
     Route: 065
  20. PIPAMPERONE [Concomitant]
     Active Substance: PIPAMPERONE
     Route: 065
  21. FORMOTEROL [Suspect]
     Active Substance: FORMOTEROL
     Indication: PNEUMONIA
     Route: 065
     Dates: start: 201601
  22. AMISULPRIDE [Concomitant]
     Active Substance: AMISULPRIDE
     Route: 065

REACTIONS (9)
  - Sleep disorder [Unknown]
  - Aggression [Recovered/Resolved]
  - Condition aggravated [Recovered/Resolved]
  - Fatigue [Unknown]
  - Delirium [Unknown]
  - Agitation [Unknown]
  - Off label use [Unknown]
  - Hangover [Unknown]
  - Drug withdrawal syndrome [Unknown]
